FAERS Safety Report 9238725 (Version 1)
Quarter: 2013Q2

REPORT INFORMATION
  Report Type: Spontaneous
  Country: FR (occurrence: FR)
  Receive Date: 20130418
  Receipt Date: 20130418
  Transmission Date: 20140414
  Serious: Yes (Other)
  Sender: FDA-Public Use
  Company Number: FR-BRISTOL-MYERS SQUIBB COMPANY-18781922

PATIENT
  Age: 65 Year
  Sex: Male

DRUGS (5)
  1. SPRYCEL (CML) TABS 100 MG [Suspect]
     Indication: CHRONIC MYELOID LEUKAEMIA
     Route: 048
     Dates: start: 20120611
  2. FENOFIBRATE [Concomitant]
  3. ATENOLOL [Concomitant]
  4. INDAPAMIDE [Concomitant]
  5. ZOLPIDEM [Concomitant]

REACTIONS (1)
  - Peripheral arterial occlusive disease [Not Recovered/Not Resolved]
